FAERS Safety Report 7276293-2 (Version None)
Quarter: 2011Q1

REPORT INFORMATION
  Report Type: 
  Country: None (occurrence: None)
  Receive Date: 20110204
  Receipt Date: 20110202
  Transmission Date: 20110831
  Serious: Yes (Death, Hospitalization, Other)
  Sender: FDA-Public Use
  Company Number: BR-ABBOTT-10P-020-0683696-00

PATIENT
  Sex: Female

DRUGS (3)
  1. METHOTREXATE [Concomitant]
     Indication: RHEUMATOID ARTHRITIS
  2. HUMIRA [Suspect]
  3. HUMIRA [Suspect]
     Indication: RHEUMATOID ARTHRITIS

REACTIONS (10)
  - PNEUMOTHORAX TRAUMATIC [None]
  - MALABSORPTION [None]
  - GASTRIC ULCER [None]
  - HYPOPHAGIA [None]
  - COLONIC OBSTRUCTION [None]
  - ACUTE ABDOMEN [None]
  - SEPSIS [None]
  - MALNUTRITION [None]
  - ASTHENIA [None]
  - INFECTION [None]
